FAERS Safety Report 10379941 (Version 2)
Quarter: 2014Q3

REPORT INFORMATION
  Report Type: Spontaneous
  Country: GB (occurrence: GB)
  Receive Date: 20140813
  Receipt Date: 20140813
  Transmission Date: 20150326
  Serious: Yes (Death)
  Sender: FDA-Public Use
  Company Number: PHHY2014GB040516

PATIENT
  Age: 61 Year
  Sex: Male

DRUGS (15)
  1. DIAZEPAM. [Concomitant]
     Active Substance: DIAZEPAM
     Dosage: 10 MG FOUR TIMES DAILY
     Route: 048
  2. SIMVASTATIN. [Concomitant]
     Active Substance: SIMVASTATIN
     Dosage: 40 MG ONCE DAILY
     Route: 048
  3. CITALOPRAM [Interacting]
     Active Substance: CITALOPRAM HYDROBROMIDE
     Indication: DEPRESSION
  4. PARACETAMOL [Concomitant]
     Active Substance: ACETAMINOPHEN
     Dosage: 500 MG, UNK
     Route: 048
  5. AMITRIPTYLINE [Interacting]
     Active Substance: AMITRIPTYLINE
     Indication: DEPRESSION
     Dosage: 50 MG DAILY (TAKEN AT NIGHT)
     Route: 048
  6. GABAPENTIN. [Concomitant]
     Active Substance: GABAPENTIN
     Dosage: 800 MG THREE TIMES DAILY
     Route: 048
  7. GABAPENTIN. [Concomitant]
     Active Substance: GABAPENTIN
     Dosage: 400 MG, DAILY
     Route: 048
  8. QUININE SULFATE. [Suspect]
     Active Substance: QUININE SULFATE
     Indication: ANALGESIC THERAPY
     Dosage: 200 MG ONCE DAILY
     Route: 048
  9. SILDENAFIL CITRATE. [Concomitant]
     Active Substance: SILDENAFIL CITRATE
     Dosage: HALF TO ONE TABLET ONE HOUR BEFORE PLANNED ACTIVITY, AS REQUIRED
  10. CODEINE PHOSPHATE [Interacting]
     Active Substance: CODEINE PHOSPHATE
     Dosage: UNSPECIFIED OVERDOSE
     Route: 048
     Dates: start: 20120810, end: 20120810
  11. VITAMIN B COMPOUND [Concomitant]
     Dosage: 1 TABLET DAILY
     Route: 048
  12. CITALOPRAM [Interacting]
     Active Substance: CITALOPRAM HYDROBROMIDE
     Indication: PANIC DISORDER
     Dosage: 60 MG, DAILY
     Route: 048
  13. CODEINE PHOSPHATE [Interacting]
     Active Substance: CODEINE PHOSPHATE
     Indication: PAIN
     Dosage: 60 MG FOUR TIMES DAILY
     Route: 048
     Dates: end: 20120809
  14. DIAZEPAM. [Concomitant]
     Active Substance: DIAZEPAM
     Dosage: 10 MG, QID
     Route: 048
  15. PARACETAMOL [Concomitant]
     Active Substance: ACETAMINOPHEN
     Dosage: 1 G FOUR TIMES DAILY
     Route: 048

REACTIONS (5)
  - Presyncope [Fatal]
  - Drug interaction [Fatal]
  - Prescribed overdose [Unknown]
  - Overdose [Unknown]
  - Cardiac arrest [Fatal]

NARRATIVE: CASE EVENT DATE: 20120810
